FAERS Safety Report 23955108 (Version 1)
Quarter: 2024Q2

REPORT INFORMATION
  Report Type: Spontaneous
  Country: ES (occurrence: ES)
  Receive Date: 20240610
  Receipt Date: 20240610
  Transmission Date: 20240716
  Serious: Yes (Other)
  Sender: FDA-Public Use
  Company Number: ES-MENARINI-ES-MEN-096117

PATIENT

DRUGS (3)
  1. ORITAVANCIN [Suspect]
     Active Substance: ORITAVANCIN
     Indication: Staphylococcal infection
     Dosage: 1200 MILLIGRAM
     Route: 042
     Dates: start: 20240423
  2. ORITAVANCIN [Suspect]
     Active Substance: ORITAVANCIN
     Indication: Arthritis bacterial
     Dosage: 1200 MILLIGRAM
     Route: 042
     Dates: start: 20240507, end: 20240507
  3. ORITAVANCIN [Suspect]
     Active Substance: ORITAVANCIN
     Dosage: 4800 MILLIGRAM(S) (1200 MILLIGRAM(S), 1 IN 06 HOUR)
     Route: 042
     Dates: start: 20240514

REACTIONS (12)
  - Asthenia [Recovered/Resolved]
  - Musculoskeletal chest pain [Recovered/Resolved]
  - Musculoskeletal stiffness [Recovered/Resolved]
  - Dysuria [Recovered/Resolved]
  - Infusion related reaction [Recovered/Resolved]
  - Chills [Recovered/Resolved]
  - Back pain [Recovered/Resolved]
  - Vomiting [Recovered/Resolved]
  - Tremor [Recovered/Resolved]
  - Dizziness [Recovered/Resolved]
  - Nausea [Recovered/Resolved]
  - Product use in unapproved indication [Recovered/Resolved]

NARRATIVE: CASE EVENT DATE: 20240307
